FAERS Safety Report 16126688 (Version 1)
Quarter: 2019Q2

REPORT INFORMATION
  Report Type: Spontaneous
  Country: US (occurrence: US)
  Receive Date: 20190327
  Receipt Date: 20190327
  Transmission Date: 20190711
  Serious: Yes (Disabling)
  Sender: FDA-Public Use
  Company Number: None

PATIENT
  Age: 64 Year
  Sex: Female
  Weight: 90 kg

DRUGS (1)
  1. PANTOPRAZOLE SODIUM 40MG 30 MIN. BEFORE BREAKFAST AND DINNER . [Suspect]
     Active Substance: PANTOPRAZOLE SODIUM
     Indication: REFLUX LARYNGITIS
     Route: 048
     Dates: start: 20190108, end: 20190123

REACTIONS (4)
  - Weight increased [None]
  - Hypertension [None]
  - Dyspnoea [None]
  - Generalised oedema [None]

NARRATIVE: CASE EVENT DATE: 20190123
